FAERS Safety Report 12995226 (Version 1)
Quarter: 2016Q4

REPORT INFORMATION
  Report Type: Report from Study
  Country: BR (occurrence: BR)
  Receive Date: 20161202
  Receipt Date: 20161202
  Transmission Date: 20170207
  Serious: Yes (Other)
  Sender: FDA-Public Use
  Company Number: PHHY2016BR163599

PATIENT
  Sex: Male

DRUGS (1)
  1. SANDOSTATIN LAR DEPOT [Suspect]
     Active Substance: OCTREOTIDE ACETATE
     Indication: PITUITARY TUMOUR
     Dosage: 30 MG, QMO
     Route: 030

REACTIONS (10)
  - Abasia [Unknown]
  - Eating disorder [Unknown]
  - Thrombosis [Unknown]
  - Muscular weakness [Unknown]
  - Malaise [Unknown]
  - Asthenia [Unknown]
  - Diabetes mellitus [Unknown]
  - Visual impairment [Unknown]
  - Mass [Unknown]
  - Hormone level abnormal [Unknown]
